FAERS Safety Report 14297990 (Version 1)
Quarter: 2017Q4

REPORT INFORMATION
  Report Type: Spontaneous
  Country: GB (occurrence: GB)
  Receive Date: 20171218
  Receipt Date: 20171218
  Transmission Date: 20180321
  Serious: Yes (Other)
  Sender: FDA-Public Use
  Company Number: GB-TEVA-2017-GB-833253

PATIENT
  Age: 52 Year
  Sex: Male

DRUGS (1)
  1. SIMVASTATIN. [Suspect]
     Active Substance: SIMVASTATIN
     Indication: HYPERCHOLESTEROLAEMIA
     Dosage: SINCE 10 YEARS
     Route: 065

REACTIONS (2)
  - Autoimmune disorder [Recovered/Resolved]
  - Necrotising myositis [Recovered/Resolved]
